FAERS Safety Report 9095225 (Version 1)
Quarter: 2013Q1

REPORT INFORMATION
  Report Type: Spontaneous
  Country: US (occurrence: None)
  Receive Date: 20130123
  Receipt Date: 20130123
  Transmission Date: 20140127
  Serious: Yes (Life-Threatening, Hospitalization, Other)
  Sender: FDA-Public Use
  Company Number: USW201301-000001

PATIENT
  Age: 78 Year
  Sex: Male

DRUGS (12)
  1. APOKYN (APOMORPHINE HYDROCHLORIDE) (APOMORPHINE HYDROCHLORIDE) [Suspect]
     Indication: PARKINSON^S DISEASE
     Dosage: 0.4 ML (2-3 TIMES A DAY), SUBCUTANEOUS
     Dates: end: 20121226
  2. STALEVO [Suspect]
     Indication: PARKINSON^S DISEASE
     Dosage: 8 TIMES A DAY, ORAL
  3. LASIX (FUROSEMIDE) (FUROSEMIDE) [Suspect]
     Indication: FLUID RETENTION
     Route: 048
  4. SINEMET CR [Suspect]
     Indication: PARKINSON^S DISEASE
     Route: 048
  5. REQUIP [Suspect]
     Indication: PARKINSON^S DISEASE
     Route: 048
  6. AZILECT [Suspect]
     Indication: PARKINSON^S DISEASE
     Route: 048
  7. REMERON [Suspect]
     Indication: PARKINSON^S DISEASE
     Route: 048
  8. LIPITOR [Suspect]
     Indication: BLOOD PRESSURE
     Route: 048
  9. VERAPAMIL [Suspect]
     Route: 048
  10. FINASTERIDE [Suspect]
     Route: 048
  11. FLOMAX [Suspect]
     Route: 048
  12. BABY ASPIRIN [Suspect]

REACTIONS (5)
  - Yawning [None]
  - Cardiac failure congestive [None]
  - Feeling abnormal [None]
  - Cardiomyopathy [None]
  - Urinary tract infection [None]
